FAERS Safety Report 23410803 (Version 1)
Quarter: 2024Q1

REPORT INFORMATION
  Report Type: Report from Study
  Country: DE (occurrence: DE)
  Receive Date: 20240117
  Receipt Date: 20240117
  Transmission Date: 20240409
  Serious: Yes (Other)
  Sender: FDA-Public Use
  Company Number: DE-KRKA-DE2023K19134STU

PATIENT
  Age: 78 Year
  Sex: Female
  Weight: 71 kg

DRUGS (9)
  1. LENALIDOMIDE [Suspect]
     Active Substance: LENALIDOMIDE
     Indication: Plasmacytoma
     Dosage: 15 MILLIGRAM, QD (15 MG, PER DAY ON CYCLE DAYS 1-21 OF A 28 DAYS LONG CYCLE)
     Route: 048
     Dates: start: 20221215, end: 20231004
  2. LENALIDOMIDE [Suspect]
     Active Substance: LENALIDOMIDE
     Indication: Plasma cell myeloma
     Dosage: 10 MILLIGRAM, QD (10 MG PER DAY ON CYCLE DAYS 1-21 OF A 28 DAYS LONG CYCLE)
     Route: 065
     Dates: start: 20231026
  3. DARZALEX [Suspect]
     Active Substance: DARATUMUMAB
     Indication: Plasmacytoma
     Dosage: 1120 MILLIGRAM, QD (1120 MG, PER DAY ON CYCLE DAY 1 OF A 28 DAYS LONG CYCLE)
     Route: 065
     Dates: start: 20221215
  4. DARZALEX [Suspect]
     Active Substance: DARATUMUMAB
     Indication: Plasma cell myeloma
  5. DEXAMETHASONE [Suspect]
     Active Substance: DEXAMETHASONE
     Indication: Plasmacytoma
     Dosage: 20 MILLIGRAM, QD (20 MG, PER DAY ON CYCLE DAYS 1, 8, 15, 22 OF A 28 DAYS LONG CYCLE)
     Route: 065
     Dates: start: 20221215
  6. DEXAMETHASONE [Suspect]
     Active Substance: DEXAMETHASONE
     Indication: Plasma cell myeloma
  7. LEVOTHYROXINE [Concomitant]
     Active Substance: LEVOTHYROXINE\LEVOTHYROXINE SODIUM
     Dosage: UNK
     Route: 065
  8. ASPIRIN [Concomitant]
     Active Substance: ASPIRIN
     Dosage: UNK
     Route: 065
  9. CANDESARTAN [Concomitant]
     Active Substance: CANDESARTAN
     Dosage: UNK
     Route: 065

REACTIONS (2)
  - Leukopenia [Recovered/Resolved]
  - Reticulocyte count decreased [Unknown]

NARRATIVE: CASE EVENT DATE: 20230907
